FAERS Safety Report 9066814 (Version 1)
Quarter: 2013Q1

REPORT INFORMATION
  Report Type: Spontaneous
  Country: FR (occurrence: FR)
  Receive Date: 20130214
  Receipt Date: 20130214
  Transmission Date: 20140127
  Serious: Yes (Life-Threatening)
  Sender: FDA-Public Use
  Company Number: FR-GLAXOSMITHKLINE-B0865797A

PATIENT
  Age: 47 Year
  Sex: Female

DRUGS (10)
  1. LAMICTAL [Suspect]
     Indication: PRODUCT USED FOR UNKNOWN INDICATION
     Dosage: 200MG PER DAY
     Route: 048
     Dates: start: 20121226, end: 20130121
  2. ANAFRANIL [Suspect]
     Indication: PRODUCT USED FOR UNKNOWN INDICATION
     Dosage: 25MG PER DAY
     Route: 048
     Dates: start: 20121226, end: 20130121
  3. AUGMENTIN [Suspect]
     Indication: PRODUCT USED FOR UNKNOWN INDICATION
     Route: 065
     Dates: start: 20130122, end: 20130122
  4. DEPAKOTE [Concomitant]
     Indication: BIPOLAR DISORDER
     Dosage: 1G PER DAY
     Route: 065
     Dates: start: 201211
  5. SIFROL [Concomitant]
     Indication: RESTLESS LEGS SYNDROME
     Route: 065
  6. IBUPROFEN [Concomitant]
     Indication: HEADACHE
     Route: 065
  7. AMOXICILLIN [Concomitant]
     Indication: TONSILLITIS
     Route: 048
     Dates: start: 201301, end: 201301
  8. CETIRIZINE [Concomitant]
     Route: 065
     Dates: start: 20130107
  9. PREDNISONE [Concomitant]
     Route: 065
     Dates: start: 201301, end: 201301
  10. ORELOX [Concomitant]
     Route: 065
     Dates: start: 20130107, end: 20130114

REACTIONS (15)
  - Agranulocytosis [Recovering/Resolving]
  - Rash macular [Recovering/Resolving]
  - Pruritus [Recovering/Resolving]
  - Hyperthermia [Unknown]
  - Lymphadenopathy [Unknown]
  - Productive cough [Unknown]
  - Tonsillitis [Unknown]
  - Myalgia [Unknown]
  - Tremor [Unknown]
  - Headache [Unknown]
  - Asthenia [Unknown]
  - Dyspnoea [Unknown]
  - Palpitations [Unknown]
  - Granuloma skin [Unknown]
  - Incorrect dose administered [Unknown]
